FAERS Safety Report 10242800 (Version 2)
Quarter: 2014Q3

REPORT INFORMATION
  Report Type: Spontaneous
  Country: US (occurrence: US)
  Receive Date: 20140618
  Receipt Date: 20140828
  Transmission Date: 20150326
  Serious: Yes (Other)
  Sender: FDA-Public Use
  Company Number: US-UCBSA-2014001922

PATIENT
  Age: 62 Year
  Sex: Female
  Weight: 55.9 kg

DRUGS (2)
  1. KEPPRA [Suspect]
     Active Substance: LEVETIRACETAM
     Indication: CONVULSION
     Dosage: 500 MG, 2X/DAY (BID)
     Route: 048
     Dates: start: 200101
  2. VITAMIN C [Concomitant]
     Active Substance: ASCORBIC ACID
     Indication: SUPPLEMENTATION THERAPY
     Dosage: 1000 MG, ONCE DAILY (QD)
     Route: 048

REACTIONS (4)
  - Throat tightness [Unknown]
  - Asthma [Recovering/Resolving]
  - Uterine cancer [Recovered/Resolved]
  - Therapeutic response changed [Unknown]

NARRATIVE: CASE EVENT DATE: 2010
